FAERS Safety Report 6089563-0 (Version None)
Quarter: 2009Q1

REPORT INFORMATION
  Report Type: 
  Country: None (occurrence: None)
  Receive Date: 20090224
  Receipt Date: 20090213
  Transmission Date: 20090719
  Serious: Yes (Other)
  Sender: FDA-Public Use
  Company Number: US-JNJCH-2008056795

PATIENT
  Sex: Male
  Weight: 83.5 kg

DRUGS (1)
  1. LISTERINE WHITENING PRE-BRUSH RINSE [Suspect]
     Indication: DENTAL CARE
     Dosage: TEXT:HALF CAPFUL TWICE DAILY
     Route: 048

REACTIONS (5)
  - GINGIVAL BLEEDING [None]
  - GINGIVAL PAIN [None]
  - GINGIVAL SWELLING [None]
  - ORAL MUCOSAL EXFOLIATION [None]
  - PERIODONTAL DISEASE [None]
